FAERS Safety Report 4594782-6 (Version None)
Quarter: 2005Q1

REPORT INFORMATION
  Report Type: 
  Country: None (occurrence: None)
  Receive Date: 20050223
  Receipt Date: 20050208
  Transmission Date: 20050727
  Serious: Yes (Other)
  Sender: FDA-Public Use
  Company Number: 8008409

PATIENT
  Age: 12 Year
  Sex: Female
  Weight: 42.7 kg

DRUGS (2)
  1. KEPPRA [Suspect]
     Indication: CONVULSION
     Dosage: 250 MG 2/D PO
     Route: 048
     Dates: start: 20031001, end: 20041101
  2. DOXYCYCLINE [Suspect]
     Indication: ACNE
     Dosage: PO
     Route: 048
     Dates: start: 20041001, end: 20041101

REACTIONS (8)
  - ACNE [None]
  - DYSPHONIA [None]
  - HYPERSENSITIVITY [None]
  - OEDEMA PERIPHERAL [None]
  - PERIORBITAL OEDEMA [None]
  - RASH [None]
  - SWELLING FACE [None]
  - URTICARIA [None]
